FAERS Safety Report 5955946-X (Version None)
Quarter: 2008Q4

REPORT INFORMATION
  Report Type: 
  Country: None (occurrence: None)
  Receive Date: 20081112
  Receipt Date: 20081027
  Transmission Date: 20090506
  Serious: Yes (Death)
  Sender: FDA-Public Use
  Company Number: DSA_62333_2008

PATIENT
  Sex: Male
  Weight: 72.5755 kg

DRUGS (2)
  1. MYSOLINE [Suspect]
     Indication: PARKINSON'S DISEASE
     Dosage: (25 MG QD ORAL), (50 MG QD ORAL)
     Route: 048
     Dates: start: 20080501
  2. COREG [Concomitant]

REACTIONS (2)
  - COMPLETED SUICIDE [None]
  - HOMICIDE [None]
